FAERS Safety Report 23776313 (Version 4)
Quarter: 2024Q2

REPORT INFORMATION
  Report Type: Spontaneous
  Country: JP (occurrence: JP)
  Receive Date: 20240424
  Receipt Date: 20240619
  Transmission Date: 20240716
  Serious: Yes (Other)
  Sender: FDA-Public Use
  Company Number: JP-002147023-NVSJ2023JP014826

PATIENT
  Age: 0 Year
  Sex: Male
  Weight: 4.6 kg

DRUGS (8)
  1. ZOLGENSMA [Suspect]
     Active Substance: ONASEMNOGENE ABEPARVOVEC-XIOI
     Indication: Spinal muscular atrophy
     Dosage: 27.5 ML
     Route: 041
     Dates: start: 20231005, end: 20231005
  2. PREDNISOLONE [Concomitant]
     Active Substance: PREDNISOLONE
     Indication: Product used for unknown indication
     Dosage: 1 MG/KG
     Route: 048
     Dates: start: 20231004, end: 20231104
  3. PREDNISOLONE [Concomitant]
     Active Substance: PREDNISOLONE
     Dosage: 0.5 MG/KG
     Route: 048
     Dates: start: 20231105, end: 20231119
  4. PREDNISOLONE [Concomitant]
     Active Substance: PREDNISOLONE
     Dosage: 0.25 MG/KG
     Route: 048
     Dates: start: 20231120, end: 20231204
  5. NUSINERSEN [Concomitant]
     Active Substance: NUSINERSEN
     Indication: Spinal muscular atrophy
     Dosage: 9.6MG/4ML
     Route: 065
     Dates: start: 20230824
  6. NUSINERSEN [Concomitant]
     Active Substance: NUSINERSEN
     Dosage: 9.6 MG/4ML
     Route: 065
     Dates: start: 20230907
  7. NUSINERSEN [Concomitant]
     Active Substance: NUSINERSEN
     Dosage: 9.6MG/4ML
     Route: 065
     Dates: start: 20230921
  8. HERBALS [Concomitant]
     Active Substance: HERBALS
     Indication: Product used for unknown indication
     Dosage: 1.5 G
     Route: 065
     Dates: start: 20231115, end: 20231213

REACTIONS (10)
  - Hydrocephalus [Recovering/Resolving]
  - Head circumference abnormal [Recovering/Resolving]
  - Pyrexia [Recovered/Resolved]
  - Vomiting [Recovered/Resolved]
  - Alanine aminotransferase increased [Recovered/Resolved]
  - Aspartate aminotransferase increased [Recovered/Resolved]
  - Deformity thorax [Unknown]
  - Dysphagia [Recovering/Resolving]
  - Respiratory disorder [Recovering/Resolving]
  - Condition aggravated [Recovering/Resolving]

NARRATIVE: CASE EVENT DATE: 20231009
